FAERS Safety Report 23971252 (Version 1)
Quarter: 2024Q2

REPORT INFORMATION
  Report Type: Spontaneous
  Country: US (occurrence: None)
  Receive Date: 20240612
  Receipt Date: 20240612
  Transmission Date: 20240715
  Serious: Yes (Hospitalization, Other)
  Sender: FDA-Public Use
  Company Number: None

PATIENT
  Age: 30 Year
  Sex: Female
  Weight: 109.35 kg

DRUGS (1)
  1. HERBALS\MUSHROOMS UNSPECIFIED [Suspect]
     Active Substance: HERBALS\MUSHROOMS UNSPECIFIED
     Indication: Product used for unknown indication
     Dosage: OTHER FREQUENCY : 2 TINY SQUARES;?
     Route: 048

REACTIONS (4)
  - Loss of consciousness [None]
  - Visual impairment [None]
  - Product complaint [None]
  - Nervous system disorder [None]

NARRATIVE: CASE EVENT DATE: 20240109
